FAERS Safety Report 14414158 (Version 2)
Quarter: 2018Q1

REPORT INFORMATION
  Report Type: Report from Study
  Country: None (occurrence: CA)
  Receive Date: 20180120
  Receipt Date: 20180216
  Transmission Date: 20180509
  Serious: Yes (Hospitalization, Other)
  Sender: FDA-Public Use
  Company Number: CA-ABBVIE-18K-028-2226577-00

PATIENT
  Sex: Male
  Weight: 92.5 kg

DRUGS (1)
  1. HUMIRA [Suspect]
     Active Substance: ADALIMUMAB
     Indication: CROHN^S DISEASE
     Route: 058
     Dates: start: 20150721

REACTIONS (4)
  - Crohn^s disease [Not Recovered/Not Resolved]
  - Gastrointestinal obstruction [Recovered/Resolved]
  - Flatulence [Unknown]
  - Gastrointestinal obstruction [Recovered/Resolved]

NARRATIVE: CASE EVENT DATE: 2017
